FAERS Safety Report 20124389 (Version 1)
Quarter: 2021Q4

REPORT INFORMATION
  Report Type: Spontaneous
  Country: CH (occurrence: CH)
  Receive Date: 20211129
  Receipt Date: 20211129
  Transmission Date: 20220303
  Serious: Yes (Death, Other)
  Sender: FDA-Public Use
  Company Number: CH-TEVA-2021-CH-1979917

PATIENT
  Age: 71 Day
  Sex: Male

DRUGS (3)
  1. CIPROFLOXACIN [Interacting]
     Active Substance: CIPROFLOXACIN
     Indication: Urinary tract infection
     Route: 065
  2. TIZANIDINE [Interacting]
     Active Substance: TIZANIDINE
     Indication: Urinary tract infection
     Route: 065
  3. CLONAZEPAM [Suspect]
     Active Substance: CLONAZEPAM
     Indication: Product used for unknown indication
     Route: 065

REACTIONS (6)
  - Muscular weakness [Fatal]
  - Hypotonia [Fatal]
  - Hypotension [Fatal]
  - Organ failure [Fatal]
  - Drug interaction [Fatal]
  - Depressed level of consciousness [Unknown]
